FAERS Safety Report 4732729-X (Version None)
Quarter: 2005Q3

REPORT INFORMATION
  Report Type: 
  Country: None (occurrence: None)
  Receive Date: 20050801
  Receipt Date: 20050801
  Transmission Date: 20060218
  Serious: Yes (Other)
  Sender: FDA-Public Use
  Company Number: None

PATIENT
  Age: 55 Year
  Sex: Male
  Weight: 97.5 kg

DRUGS (2)
  1. SIMVASTATIN [Suspect]
     Indication: HYPERLIPIDAEMIA
     Dosage: 20MG   QHS   ORAL
     Route: 048
     Dates: start: 20050516, end: 20050614
  2. ASPIRIN [Concomitant]

REACTIONS (4)
  - ANGINA PECTORIS [None]
  - CATHETERISATION CARDIAC ABNORMAL [None]
  - DYSPNOEA [None]
  - PLATELET COUNT DECREASED [None]
